FAERS Safety Report 12304264 (Version 1)
Quarter: 2016Q2

REPORT INFORMATION
  Report Type: Spontaneous
  Country: US (occurrence: None)
  Receive Date: 20160425
  Receipt Date: 20160425
  Transmission Date: 20160815
  Serious: Yes (Other)
  Sender: FDA-Public Use
  Company Number: None

PATIENT
  Age: 61 Year
  Sex: Male
  Weight: 82.56 kg

DRUGS (1)
  1. BENICAR [Suspect]
     Active Substance: OLMESARTAN MEDOXOMIL
     Indication: HYPERTENSION
     Route: 048
     Dates: start: 20160421, end: 20160422

REACTIONS (5)
  - Nausea [None]
  - Vomiting projectile [None]
  - Seizure [None]
  - Gastrointestinal pain [None]
  - Dysgeusia [None]

NARRATIVE: CASE EVENT DATE: 20160422
